FAERS Safety Report 7909475-4 (Version None)
Quarter: 2011Q4

REPORT INFORMATION
  Report Type: 
  Country: None (occurrence: None)
  Receive Date: 20111111
  Receipt Date: 20111103
  Transmission Date: 20120403
  Serious: Yes (Hospitalization)
  Sender: FDA-Public Use
  Company Number: US-BRISTOL-MYERS SQUIBB COMPANY-15993827

PATIENT
  Age: 77 Year
  Sex: Male

DRUGS (9)
  1. ERBITUX [Suspect]
     Indication: HEAD AND NECK CANCER
     Dosage: DAY 1 CYCLE 1 ONLY,ON 01SEP11 DISCONTINUED
     Route: 042
     Dates: start: 20110804, end: 20110804
  2. NIFEDIPINE [Concomitant]
  3. GARLIC [Concomitant]
     Dosage: TAB
  4. FLUOROURACIL [Suspect]
     Indication: HEAD AND NECK CANCER
     Dosage: DAY 1-4,ON 01SEP11 DISCONTINUED,LAST DOSE ON 08AUG11
     Route: 042
     Dates: start: 20110804, end: 20110808
  5. IBUPROFEN [Concomitant]
  6. COZAAR [Concomitant]
  7. CARBOPLATIN [Suspect]
     Indication: HEAD AND NECK CANCER
     Dosage: DAY 1,ON 01SEP11 DISCONTINUED
     Route: 042
     Dates: start: 20110804, end: 20110804
  8. TOPROL-XL [Concomitant]
  9. CENTRUM [Concomitant]

REACTIONS (1)
  - MYOCARDIAL INFARCTION [None]
